FAERS Safety Report 4584077-9 (Version None)
Quarter: 2005Q1

REPORT INFORMATION
  Report Type: 
  Country: None (occurrence: None)
  Receive Date: 20050216
  Receipt Date: 20050210
  Transmission Date: 20050727
  Serious: Yes (Hospitalization)
  Sender: FDA-Public Use
  Company Number: CA-MERCK-0502CAN00069

PATIENT
  Age: 50 Year
  Sex: Male
  Weight: 77 kg

DRUGS (3)
  1. HYZAAR [Suspect]
     Indication: HYPERTENSION
     Route: 048
     Dates: start: 20050204
  2. ALLOPURINOL [Concomitant]
     Indication: GOUT
     Route: 065
     Dates: start: 19921219
  3. ATORVASTATIN CALCIUM [Concomitant]
     Indication: DYSLIPIDAEMIA
     Route: 065
     Dates: start: 20050106

REACTIONS (1)
  - GASTROINTESTINAL HAEMORRHAGE [None]
